FAERS Safety Report 20279009 (Version 1)
Quarter: 2022Q1

REPORT INFORMATION
  Report Type: Spontaneous
  Country: US (occurrence: US)
  Receive Date: 20220103
  Receipt Date: 20220103
  Transmission Date: 20220423
  Serious: No
  Sender: FDA-Public Use
  Company Number: US-drreddys-SPO/USA/21/0145349

PATIENT
  Age: 64 Year
  Sex: Female
  Weight: 72 kg

DRUGS (1)
  1. NICOTINE [Suspect]
     Active Substance: NICOTINE
     Indication: Tobacco user
     Route: 062
     Dates: start: 20211221, end: 20211223

REACTIONS (4)
  - Nicotine dependence [Unknown]
  - Insomnia [Unknown]
  - Drug ineffective [Unknown]
  - Product quality issue [Unknown]

NARRATIVE: CASE EVENT DATE: 20211221
